FAERS Safety Report 8135736-2 (Version None)
Quarter: 2012Q1

REPORT INFORMATION
  Report Type: 
  Country: None (occurrence: None)
  Receive Date: 20120103
  Receipt Date: 20111116
  Transmission Date: 20120608
  Serious: No
  Sender: FDA-Public Use
  Company Number: AE-2011-003043

PATIENT
  Age: 28 Year
  Sex: Male

DRUGS (6)
  1. RIBAVIRIN [Concomitant]
  2. ASPIRIN [Concomitant]
  3. PEGINTERFERON (PEGINTERFERON ALFA-2A) [Concomitant]
  4. SUBOXONE (BUPRENORPHINE) [Concomitant]
  5. NICOTINE [Concomitant]
  6. INCIVEK [Suspect]
     Dosage: 2250 (750 MG, 3 IN 1 D), ORAL
     Route: 048
     Dates: start: 20110827, end: 20111025

REACTIONS (4)
  - PYREXIA [None]
  - EOSINOPHIL COUNT ABNORMAL [None]
  - FACE OEDEMA [None]
  - RASH MACULO-PAPULAR [None]
